FAERS Safety Report 24193932 (Version 1)
Quarter: 2024Q3

REPORT INFORMATION
  Report Type: Spontaneous
  Country: GB (occurrence: GB)
  Receive Date: 20240809
  Receipt Date: 20240809
  Transmission Date: 20241016
  Serious: Yes (Other)
  Sender: ACCORD
  Company Number: None

PATIENT
  Age: 50 Year
  Sex: Female
  Weight: 65 kg

DRUGS (4)
  1. APIXABAN [Suspect]
     Active Substance: APIXABAN
     Indication: Product used for unknown indication
     Dosage: 2.5MG TABLETS, 2 TWICE A DAY
     Dates: start: 20240705
  2. IBUPROFEN [Concomitant]
     Active Substance: IBUPROFEN
     Dosage: 1 THREE TIMES (400MG TABLETS)
     Dates: start: 20240702
  3. CARBIMAZOLE [Concomitant]
     Active Substance: CARBIMAZOLE
     Dosage: (15MG TABLETS) TAKE TWO TABLET
     Dates: start: 20240429
  4. PROPRANOLOL [Concomitant]
     Active Substance: PROPRANOLOL HYDROCHLORIDE
     Dosage: (40MG TABLETS) TAKE ONE THREE
     Dates: start: 20240429

REACTIONS (1)
  - Swelling face [Recovered/Resolved]

NARRATIVE: CASE EVENT DATE: 20240706
